FAERS Safety Report 7805479-0 (Version None)
Quarter: 2011Q4

REPORT INFORMATION
  Report Type: 
  Country: None (occurrence: None)
  Receive Date: 20111010
  Receipt Date: 20110929
  Transmission Date: 20120403
  Serious: Yes (Other)
  Sender: FDA-Public Use
  Company Number: PHFR2011GB05653

PATIENT
  Age: 26 Year
  Sex: Female

DRUGS (2)
  1. TERBINAFINE HCL [Suspect]
     Dosage: 250 MG, UNK
     Route: 048
  2. ALCOHOL [Interacting]

REACTIONS (2)
  - MALAISE [None]
  - ALCOHOL INTERACTION [None]
